FAERS Safety Report 10174340 (Version 1)
Quarter: 2014Q2

REPORT INFORMATION
  Report Type: Spontaneous
  Country: US (occurrence: None)
  Receive Date: 20140514
  Receipt Date: 20140514
  Transmission Date: 20141212
  Serious: No
  Sender: FDA-Public Use
  Company Number: None

PATIENT
  Age: 59 Year
  Sex: Female

DRUGS (6)
  1. FORTEO 600 MCG LILLY [Suspect]
     Indication: PRODUCT USED FOR UNKNOWN INDICATION
     Dosage: SUB Q
     Route: 058
     Dates: start: 20130918
  2. ASPIRIN [Concomitant]
  3. RED YEAST RICE [Concomitant]
  4. CALCIUM [Concomitant]
  5. MULTIPLE VITAMINS [Concomitant]
  6. FISH OIL [Concomitant]

REACTIONS (1)
  - Femur fracture [None]
